FAERS Safety Report 5065006-0 (Version None)
Quarter: 2006Q3

REPORT INFORMATION
  Report Type: 
  Country: None (occurrence: None)
  Receive Date: 20060728
  Receipt Date: 20060718
  Transmission Date: 20061208
  Serious: Yes (Death)
  Sender: FDA-Public Use
  Company Number: DE-ABBOTT-06P-062-0338496-00

PATIENT
  Sex: Female

DRUGS (6)
  1. SEVORANE LIQUID FOR INHALATION [Suspect]
     Indication: ANAESTHESIA
     Route: 055
     Dates: start: 20060526, end: 20060526
  2. DISOPRIVAN [Concomitant]
     Indication: ANAESTHESIA
     Dates: start: 20060526, end: 20060526
  3. SUFENTANIL CITRATE [Concomitant]
     Indication: ANAESTHESIA
     Dates: start: 20060526, end: 20060526
  4. ROCURONIUM BROMIDE [Concomitant]
     Indication: ANAESTHESIA
     Dates: start: 20060526, end: 20060526
  5. DOXETAXEL [Concomitant]
     Indication: CHEMOTHERAPY
     Dates: start: 20060501
  6. CAPECITABINE [Concomitant]
     Indication: CHEMOTHERAPY
     Dates: start: 20060501

REACTIONS (1)
  - HEPATIC FAILURE [None]
